FAERS Safety Report 5302441-7 (Version None)
Quarter: 2007Q2

REPORT INFORMATION
  Report Type: 
  Country: None (occurrence: None)
  Receive Date: 20070413
  Receipt Date: 20070329
  Transmission Date: 20071010
  Serious: Yes (Life-Threatening)
  Sender: FDA-Public Use
  Company Number: GXKR2007IN03220

PATIENT
  Age: 40 Year
  Sex: Male
  Weight: 80 kg

DRUGS (1)
  1. CURAM (NGX) (AMOXICILLIN, CLAVULANTE) TABLET, 625MG [Suspect]
     Dosage: 1 TABLET DAILY, ORAL
     Route: 048
     Dates: start: 20070329, end: 20070329

REACTIONS (3)
  - CHOKING SENSATION [None]
  - PRURITUS GENERALISED [None]
  - RASH GENERALISED [None]
